FAERS Safety Report 13153896 (Version 1)
Quarter: 2017Q1

REPORT INFORMATION
  Report Type: Report from Study
  Country: None (occurrence: BE)
  Receive Date: 20170126
  Receipt Date: 20170126
  Transmission Date: 20170428
  Serious: Yes (Hospitalization)
  Sender: FDA-Public Use
  Company Number: BE-ABBVIE-17P-013-1852686-00

PATIENT
  Sex: Female

DRUGS (4)
  1. DUODOPA [Suspect]
     Active Substance: CARBIDOPA\LEVODOPA
     Indication: PARKINSON^S DISEASE
     Dosage: AM= 8 ML; CD= 1.9 ML/H DURING 16 HRS; ED= 1 ML
     Route: 050
     Dates: start: 20140804, end: 20140808
  2. DUODOPA [Suspect]
     Active Substance: CARBIDOPA\LEVODOPA
     Dosage: AM= 4.8 ML ; CD= 2.7 ML/H DURING 16 HRS; ND = 2.2 ML/H DURING 8 HRS;  ED= 2 ML
     Route: 050
     Dates: start: 20160628
  3. DUODOPA [Suspect]
     Active Substance: CARBIDOPA\LEVODOPA
     Dosage: DOSES CONTINUOUSLY MONITORED AND ADAPTED
     Route: 050
     Dates: start: 20140808, end: 20160628
  4. STALEVO [Concomitant]
     Active Substance: CARBIDOPA\ENTACAPONE\LEVODOPA
     Indication: PRODUCT USED FOR UNKNOWN INDICATION
     Dosage: FORM STRENGTH: 100MG/25MG/200MG
     Route: 048

REACTIONS (1)
  - Pulmonary embolism [Recovered/Resolved]
